FAERS Safety Report 21674757 (Version 1)
Quarter: 2022Q4

REPORT INFORMATION
  Report Type: Spontaneous
  Country: US (occurrence: None)
  Receive Date: 20221201
  Receipt Date: 20221201
  Transmission Date: 20230113
  Serious: Yes (Other)
  Sender: FDA-Public Use
  Company Number: None

PATIENT
  Age: 72 Year
  Sex: Female
  Weight: 56.25 kg

DRUGS (5)
  1. XYZAL [Suspect]
     Active Substance: LEVOCETIRIZINE DIHYDROCHLORIDE
     Indication: Multiple allergies
  2. Fioriset [Concomitant]
  3. MOTRIN [Concomitant]
     Active Substance: IBUPROFEN
  4. VITAMIN A [Concomitant]
     Active Substance: VITAMIN A
  5. EMERGEN-C [Concomitant]
     Active Substance: VITAMINS

REACTIONS (3)
  - Pruritus [None]
  - Haemorrhage [None]
  - Scar [None]

NARRATIVE: CASE EVENT DATE: 20220905
